FAERS Safety Report 6453113-7 (Version None)
Quarter: 2009Q4

REPORT INFORMATION
  Report Type: 
  Country: None (occurrence: None)
  Receive Date: 20091123
  Receipt Date: 20091123
  Transmission Date: 20100525
  Serious: No
  Sender: FDA-Public Use
  Company Number: None

PATIENT

DRUGS (2)
  1. JANUMET [Suspect]
     Dosage: 50-1000MG
  2. NOVOCAIN [Concomitant]

REACTIONS (1)
  - INADEQUATE ANALGESIA [None]
